FAERS Safety Report 13430503 (Version 3)
Quarter: 2017Q4

REPORT INFORMATION
  Report Type: Spontaneous
  Country: US (occurrence: US)
  Receive Date: 20170412
  Receipt Date: 20171024
  Transmission Date: 20180320
  Serious: No
  Sender: FDA-Public Use
  Company Number: US-PFIZER INC-2017154086

PATIENT
  Age: 32 Year
  Sex: Male

DRUGS (1)
  1. SUTENT [Suspect]
     Active Substance: SUNITINIB MALATE
     Indication: CONNECTIVE TISSUE NEOPLASM
     Dosage: 37.5 MG, DAILY
     Route: 048
     Dates: start: 201704

REACTIONS (7)
  - Nausea [Unknown]
  - Dyspepsia [Unknown]
  - Drug dose omission [Unknown]
  - Vision blurred [Unknown]
  - Irritable bowel syndrome [Unknown]
  - Peripheral swelling [Unknown]
  - Product use in unapproved indication [Unknown]

NARRATIVE: CASE EVENT DATE: 201704
